FAERS Safety Report 12372014 (Version 2)
Quarter: 2016Q3

REPORT INFORMATION
  Report Type: Spontaneous
  Country: US (occurrence: US)
  Receive Date: 20160516
  Receipt Date: 20160718
  Transmission Date: 20161109
  Serious: Yes (Other)
  Sender: FDA-Public Use
  Company Number: US-PFIZER INC-2016244181

PATIENT
  Age: 48 Year
  Sex: Female
  Weight: 130 kg

DRUGS (2)
  1. IBRANCE [Suspect]
     Active Substance: PALBOCICLIB
     Indication: BREAST CANCER
     Dosage: 125 MG, D1-D21 Q 28D
     Route: 048
     Dates: start: 20160415
  2. IBRANCE [Suspect]
     Active Substance: PALBOCICLIB
     Dosage: 125 MG, D1-D21 Q 28D
     Route: 048
     Dates: end: 2016

REACTIONS (11)
  - Malaise [Unknown]
  - Spinal pain [Unknown]
  - Disease progression [Unknown]
  - Chills [Unknown]
  - Pyrexia [Unknown]
  - Breast cancer [Unknown]
  - Vomiting [Unknown]
  - Arthralgia [Unknown]
  - Hot flush [Unknown]
  - Bone pain [Unknown]
  - Fatigue [Unknown]
